FAERS Safety Report 25252745 (Version 2)
Quarter: 2025Q2

REPORT INFORMATION
  Report Type: Report from Study
  Country: US (occurrence: US)
  Receive Date: 20250429
  Receipt Date: 20250527
  Transmission Date: 20250716
  Serious: Yes (Hospitalization, Other)
  Sender: ABBVIE
  Company Number: US-ABBVIE-6244453

PATIENT
  Age: 55 Year
  Sex: Female

DRUGS (1)
  1. SKYRIZI [Suspect]
     Active Substance: RISANKIZUMAB-RZAA
     Indication: Colitis ulcerative
     Route: 058
     Dates: start: 20250213

REACTIONS (13)
  - Stomal hernia [Not Recovered/Not Resolved]
  - Procedural complication [Not Recovered/Not Resolved]
  - Stoma site pain [Recovering/Resolving]
  - Stoma site reaction [Recovered/Resolved]
  - Gastrointestinal stoma output decreased [Unknown]
  - Stoma complication [Unknown]
  - Stoma site reaction [Not Recovered/Not Resolved]
  - Stoma creation [Unknown]
  - Stoma site reaction [Unknown]
  - Mucous stools [Not Recovered/Not Resolved]
  - Stoma site hypergranulation [Not Recovered/Not Resolved]
  - Nausea [Not Recovered/Not Resolved]
  - Abdominal pain [Not Recovered/Not Resolved]

NARRATIVE: CASE EVENT DATE: 20250101
